FAERS Safety Report 5187310-8 (Version None)
Quarter: 2006Q4

REPORT INFORMATION
  Report Type: 
  Country: None (occurrence: None)
  Receive Date: 20061214
  Receipt Date: 20061205
  Transmission Date: 20070319
  Serious: Yes (Other)
  Sender: FDA-Public Use
  Company Number: 2006149808

PATIENT
  Age: 61 Year
  Sex: Female

DRUGS (1)
  1. TOLTERODINE TARTRATE [Suspect]
     Indication: URINARY INCONTINENCE
     Dosage: 1 IN 1 D, ORAL
     Route: 048
     Dates: start: 20060701, end: 20060101

REACTIONS (3)
  - ANURIA [None]
  - OEDEMA PERIPHERAL [None]
  - URINARY RETENTION [None]
